FAERS Safety Report 19685896 (Version 1)
Quarter: 2021Q3

REPORT INFORMATION
  Report Type: Report from Study
  Country: US (occurrence: US)
  Receive Date: 20210811
  Receipt Date: 20210811
  Transmission Date: 20211014
  Serious: Yes (Hospitalization)
  Sender: FDA-Public Use
  Company Number: US-TAKEDA-2021TUS050014

PATIENT
  Age: 73 Year
  Sex: Male

DRUGS (1)
  1. DEXLANSOPRAZOLE [Suspect]
     Active Substance: DEXLANSOPRAZOLE
     Indication: PRODUCT USED FOR UNKNOWN INDICATION
     Dosage: 30 MILLIGRAM
     Route: 048

REACTIONS (3)
  - Blood pressure increased [Unknown]
  - Dehydration [Unknown]
  - Malaise [Unknown]

NARRATIVE: CASE EVENT DATE: 20210801
